FAERS Safety Report 19694536 (Version 2)
Quarter: 2021Q4

REPORT INFORMATION
  Report Type: Spontaneous
  Country: PT (occurrence: PT)
  Receive Date: 20210812
  Receipt Date: 20211116
  Transmission Date: 20220303
  Serious: Yes (Hospitalization, Other)
  Sender: FDA-Public Use
  Company Number: PT-PFIZER INC-2021143577

PATIENT
  Age: 88 Year
  Sex: Male

DRUGS (4)
  1. ASPIRIN [Suspect]
     Active Substance: ASPIRIN
     Indication: Giant cell arteritis
     Dosage: 100 MILLIGRAM, QD
  2. METHOTREXATE [Suspect]
     Active Substance: METHOTREXATE
     Indication: Rheumatoid arthritis
     Dosage: 10 MILLIGRAM, QW
  3. PREDNISOLONE [Suspect]
     Active Substance: PREDNISOLONE
     Indication: Giant cell arteritis
     Dosage: 60 MILLIGRAM, QD
  4. METHYLPREDNISOLONE [Suspect]
     Active Substance: METHYLPREDNISOLONE
     Indication: Giant cell arteritis
     Dosage: 1 GRAM, Q3D

REACTIONS (3)
  - Pneumocystis jirovecii pneumonia [Recovered/Resolved]
  - Cytomegalovirus infection [Recovered/Resolved]
  - Off label use [Unknown]
